FAERS Safety Report 23674319 (Version 1)
Quarter: 2024Q1

REPORT INFORMATION
  Report Type: Report from Study
  Country: US (occurrence: US)
  Receive Date: 20240326
  Receipt Date: 20240326
  Transmission Date: 20240410
  Serious: Yes (Other)
  Sender: FDA-Public Use
  Company Number: US-BIOVITRUM-2024-US-003794

PATIENT
  Sex: Male

DRUGS (1)
  1. KINERET [Suspect]
     Active Substance: ANAKINRA
     Indication: Rheumatoid arthritis
     Dosage: 100MG DAILY

REACTIONS (3)
  - Arthritis [Unknown]
  - Intentional dose omission [Unknown]
  - Drug ineffective [Unknown]
